FAERS Safety Report 23953106 (Version 1)
Quarter: 2024Q2

REPORT INFORMATION
  Report Type: Spontaneous
  Country: JP (occurrence: JP)
  Receive Date: 20240608
  Receipt Date: 20240608
  Transmission Date: 20240716
  Serious: Yes (Death)
  Sender: FDA-Public Use
  Company Number: JP-JNJFOC-20240610824

PATIENT
  Age: 8 Decade
  Sex: Female

DRUGS (12)
  1. EPOPROSTENOL [Suspect]
     Active Substance: EPOPROSTENOL
     Indication: Pulmonary arterial hypertension
     Dosage: DOSE UNKNOWN
     Route: 041
  2. OPSUMIT [Concomitant]
     Active Substance: MACITENTAN
     Indication: Pulmonary arterial hypertension
     Dosage: DOSE UNKNOWN
     Route: 048
  3. MILRINONE [Concomitant]
     Active Substance: MILRINONE
     Indication: Pulmonary arterial hypertension
     Dosage: DOSE UNKNOWN
     Route: 065
  4. NICARDIPINE HYDROCHLORIDE [Concomitant]
     Active Substance: NICARDIPINE HYDROCHLORIDE
     Indication: Pulmonary arterial hypertension
     Dosage: DOSE UNKNOWN
     Route: 065
  5. HEPARINOID [Concomitant]
     Indication: Pulmonary arterial hypertension
     Dosage: DOSE UNKNOWN
     Route: 065
  6. SELEXIPAG [Concomitant]
     Active Substance: SELEXIPAG
     Dosage: DOSE UNKNOWN
     Route: 048
  7. WARFARIN POTASSIUM [Concomitant]
     Active Substance: WARFARIN POTASSIUM
     Dosage: DOSE UNKNOWN
     Route: 048
  8. FUROSEMIDE [Concomitant]
     Active Substance: FUROSEMIDE
     Dosage: DOSE UNKNOWN
     Route: 065
  9. CARPERITIDE RECOMBINANT [Concomitant]
     Indication: Left ventricular failure
     Dosage: DOSE UNKNOWN
     Route: 065
  10. AMLODIPINE [Concomitant]
     Active Substance: AMLODIPINE BESYLATE
     Route: 048
  11. TRANDOLAPRIL [Concomitant]
     Active Substance: TRANDOLAPRIL
     Route: 048
  12. PIMOBENDAN [Concomitant]
     Active Substance: PIMOBENDAN
     Dosage: DOSE UNKNOWN
     Route: 048

REACTIONS (1)
  - Pulmonary oedema [Fatal]
